FAERS Safety Report 8365516-4 (Version None)
Quarter: 2012Q2

REPORT INFORMATION
  Report Type: 
  Country: None (occurrence: None)
  Receive Date: 20120516
  Receipt Date: 20120508
  Transmission Date: 20120825
  Serious: Yes (Other)
  Sender: FDA-Public Use
  Company Number: PE-BAYER-2012-045425

PATIENT
  Age: 19 Year
  Sex: Female
  Weight: 45.805 kg

DRUGS (1)
  1. YASMIN [Suspect]
     Indication: OVARIAN CYST
     Dosage: 3 MG, QD
     Route: 048
     Dates: start: 20120330

REACTIONS (4)
  - BREAST PAIN [None]
  - SOMNOLENCE [None]
  - URINARY TRACT INFECTION [None]
  - ABDOMINAL PAIN [None]
